FAERS Safety Report 9758692 (Version 1)
Quarter: 2013Q4

REPORT INFORMATION
  Report Type: Spontaneous
  Country: US (occurrence: None)
  Receive Date: 20131216
  Receipt Date: 20131216
  Transmission Date: 20140711
  Serious: Yes (Hospitalization)
  Sender: FDA-Public Use
  Company Number: RB-51615-2013

PATIENT
  Age: 41 Year
  Sex: Female

DRUGS (1)
  1. SUBOXONE [Suspect]
     Indication: PRODUCT USED FOR UNKNOWN INDICATION
     Dosage: (SUBOXONE FILM; DOSING DETAILS UNKNOWN UNKNOWN)

REACTIONS (4)
  - Drug detoxification [None]
  - Fall [None]
  - Headache [None]
  - Arthralgia [None]
